FAERS Safety Report 7545569-3 (Version None)
Quarter: 2011Q2

REPORT INFORMATION
  Report Type: 
  Country: None (occurrence: None)
  Receive Date: 20110614
  Receipt Date: 20110603
  Transmission Date: 20111010
  Serious: Yes (Hospitalization)
  Sender: FDA-Public Use
  Company Number: AU-NAPPMUNDI-USA-2011-0069481

PATIENT
  Sex: Male

DRUGS (6)
  1. CALCIUM CARBONATE [Interacting]
     Indication: PRODUCT USED FOR UNKNOWN INDICATION
  2. RABEPRAZOLE SODIUM [Interacting]
     Indication: PRODUCT USED FOR UNKNOWN INDICATION
  3. BUPRENORPHINE [Suspect]
     Indication: PRODUCT USED FOR UNKNOWN INDICATION
     Dosage: 20 MCG/HR, DAILY
     Route: 062
  4. ENDEP [Interacting]
     Indication: PRODUCT USED FOR UNKNOWN INDICATION
  5. DIAZEPAM [Interacting]
     Indication: PRODUCT USED FOR UNKNOWN INDICATION
  6. VALPROATE SODIUM [Interacting]
     Indication: PRODUCT USED FOR UNKNOWN INDICATION

REACTIONS (2)
  - DRUG INTERACTION [None]
  - THERAPEUTIC RESPONSE DECREASED [None]
